FAERS Safety Report 5138519-0 (Version None)
Quarter: 2006Q4

REPORT INFORMATION
  Report Type: 
  Country: None (occurrence: None)
  Receive Date: 20061030
  Receipt Date: 20060308
  Transmission Date: 20070319
  Serious: No
  Sender: FDA-Public Use
  Company Number: US-GLAXOSMITHKLINE-A0596732A

PATIENT
  Age: 52 Year
  Sex: Male

DRUGS (4)
  1. ADVAIR HFA [Suspect]
     Indication: ASTHMA
     Dosage: 2PUFF PER DAY
     Route: 055
     Dates: start: 20060101
  2. FLOVENT [Suspect]
     Indication: ASTHMA
     Dosage: 220MCG PER DAY
     Route: 055
     Dates: start: 20060201
  3. DARVOCET [Concomitant]
  4. VALIUM [Concomitant]

REACTIONS (1)
  - DRUG INEFFECTIVE [None]
